FAERS Safety Report 4444901-7 (Version None)
Quarter: 2004Q3

REPORT INFORMATION
  Report Type: 
  Country: None (occurrence: None)
  Receive Date: 20040909
  Receipt Date: 20040825
  Transmission Date: 20050211
  Serious: Yes (Other)
  Sender: FDA-Public Use
  Company Number: GB-GLAXOSMITHKLINE-B0344187A

PATIENT
  Sex: Male

DRUGS (1)
  1. SEROXAT [Suspect]
     Indication: ILL-DEFINED DISORDER
     Route: 065
     Dates: start: 19990101

REACTIONS (13)
  - ABNORMAL SENSATION IN EYE [None]
  - ASTHENIA [None]
  - BLEPHARITIS [None]
  - DIZZINESS [None]
  - DYSSTASIA [None]
  - EYE PAIN [None]
  - FALL [None]
  - HYPERHIDROSIS [None]
  - INFECTION [None]
  - KERATOCONJUNCTIVITIS SICCA [None]
  - PHOTOPHOBIA [None]
  - VISION BLURRED [None]
  - VISUAL ACUITY REDUCED [None]
